FAERS Safety Report 11847608 (Version 1)
Quarter: 2015Q4

REPORT INFORMATION
  Report Type: Spontaneous
  Country: US (occurrence: US)
  Receive Date: 20151217
  Receipt Date: 20151217
  Transmission Date: 20160305
  Serious: No
  Sender: FDA-Public Use
  Company Number: US-PURDUE-USA-2015-0123568

PATIENT
  Age: 70 Year
  Sex: Female

DRUGS (1)
  1. DILAUDID [Suspect]
     Active Substance: HYDROMORPHONE HYDROCHLORIDE
     Indication: PAIN
     Dosage: 4 MG, TID
     Route: 048

REACTIONS (3)
  - Feeling abnormal [Unknown]
  - Inappropriate schedule of drug administration [Unknown]
  - Somnolence [Unknown]
